FAERS Safety Report 14660649 (Version 2)
Quarter: 2018Q3

REPORT INFORMATION
  Report Type: Spontaneous
  Country: US (occurrence: US)
  Receive Date: 20180320
  Receipt Date: 20180816
  Transmission Date: 20181010
  Serious: Yes (Hospitalization, Disabling)
  Sender: FDA-Public Use
  Company Number: US-JNJFOC-20180324987

PATIENT
  Age: 58 Year
  Sex: Female

DRUGS (1)
  1. INVOKANA [Suspect]
     Active Substance: CANAGLIFLOZIN
     Indication: DIABETES MELLITUS
     Route: 048
     Dates: start: 20140528, end: 20150423

REACTIONS (4)
  - Postoperative wound infection [Not Recovered/Not Resolved]
  - Wound dehiscence [Unknown]
  - Peripheral ischaemia [Unknown]
  - Leg amputation [Unknown]

NARRATIVE: CASE EVENT DATE: 201502
